FAERS Safety Report 17647820 (Version 1)
Quarter: 2020Q2

REPORT INFORMATION
  Report Type: Spontaneous
  Country: US (occurrence: US)
  Receive Date: 20200408
  Receipt Date: 20200408
  Transmission Date: 20200713
  Serious: Yes (Life-Threatening, Other)
  Sender: FDA-Public Use
  Company Number: US-FRESENIUS KABI-FK202003535

PATIENT
  Age: 41 Year
  Sex: Female
  Weight: 86 kg

DRUGS (21)
  1. HEPARIN [Concomitant]
     Active Substance: HEPARIN SODIUM
     Indication: ANTICOAGULANT THERAPY
     Route: 065
     Dates: start: 20200319, end: 20200319
  2. NOREPINEPHRINE. [Concomitant]
     Active Substance: NOREPINEPHRINE
     Indication: PRODUCT USED FOR UNKNOWN INDICATION
     Dosage: UNKNOWN
     Route: 065
  3. HEPARIN [Concomitant]
     Active Substance: HEPARIN SODIUM
     Route: 065
     Dates: start: 20200319, end: 20200319
  4. POTASSIUM CHLORIDE/SODIUM CHLORIDE/MAGNESIUM CHLORIDE HEXAHYDRATE/CALCIUM CHLORIDE DIHYDRATE [Concomitant]
     Active Substance: CALCIUM CHLORIDE\MAGNESIUM CHLORIDE\POTASSIUM CHLORIDE\SODIUM CHLORIDE
     Indication: PRODUCT USED FOR UNKNOWN INDICATION
     Dosage: UNKNOWN
     Route: 065
  5. RED BLOOD CELLS [Concomitant]
     Active Substance: HUMAN RED BLOOD CELL
     Route: 065
     Dates: start: 20200319, end: 20200319
  6. HEPARIN [Concomitant]
     Active Substance: HEPARIN SODIUM
     Route: 065
     Dates: start: 20200319, end: 20200319
  7. RED BLOOD CELLS [Concomitant]
     Active Substance: HUMAN RED BLOOD CELL
     Indication: PRODUCT USED FOR UNKNOWN INDICATION
     Route: 065
     Dates: start: 20200319, end: 20200319
  8. MIDAZOLAM. [Concomitant]
     Active Substance: MIDAZOLAM
     Indication: PRODUCT USED FOR UNKNOWN INDICATION
     Dosage: UNKNOWN
     Route: 065
  9. PROTAMINE SULFATE INJECTION, USP [Suspect]
     Active Substance: PROTAMINE SULFATE
     Dates: start: 20200319, end: 20200319
  10. HEPARIN [Concomitant]
     Active Substance: HEPARIN SODIUM
     Route: 065
     Dates: start: 20200319, end: 20200319
  11. HEPARIN [Concomitant]
     Active Substance: HEPARIN SODIUM
     Route: 065
     Dates: start: 20200319, end: 20200319
  12. AMINOCAPROIC ACID. [Concomitant]
     Active Substance: AMINOCAPROIC ACID
     Indication: PRODUCT USED FOR UNKNOWN INDICATION
     Dosage: UNKNOWN
     Route: 065
  13. RED BLOOD CELLS [Concomitant]
     Active Substance: HUMAN RED BLOOD CELL
     Route: 065
     Dates: start: 20200319, end: 20200319
  14. PROTAMINE SULFATE INJECTION, USP [Suspect]
     Active Substance: PROTAMINE SULFATE
     Indication: PROCOAGULANT THERAPY
     Dates: start: 20200319, end: 20200319
  15. EPINEPHRINE. [Concomitant]
     Active Substance: EPINEPHRINE
     Indication: PRODUCT USED FOR UNKNOWN INDICATION
     Dosage: UNKNOWN
     Route: 065
  16. CALCIUM CHLORIDE. [Concomitant]
     Active Substance: CALCIUM CHLORIDE
     Indication: PRODUCT USED FOR UNKNOWN INDICATION
     Dosage: UNKNOWN
     Route: 065
  17. HEPARIN [Concomitant]
     Active Substance: HEPARIN SODIUM
     Route: 065
     Dates: start: 20200319, end: 20200319
  18. HEPARIN [Concomitant]
     Active Substance: HEPARIN SODIUM
     Route: 065
     Dates: start: 20200319, end: 20200319
  19. VECURONIUM [Concomitant]
     Active Substance: VECURONIUM BROMIDE
     Indication: PRODUCT USED FOR UNKNOWN INDICATION
     Dosage: UNKNOWN
     Route: 065
  20. PHENYLEPHRINE [Concomitant]
     Active Substance: PHENYLEPHRINE HYDROCHLORIDE
     Indication: PRODUCT USED FOR UNKNOWN INDICATION
     Dosage: UNKNOWN
     Route: 065
  21. RED BLOOD CELLS [Concomitant]
     Active Substance: HUMAN RED BLOOD CELL
     Route: 065
     Dates: start: 20200319, end: 20200319

REACTIONS (1)
  - Hypotension [Unknown]

NARRATIVE: CASE EVENT DATE: 20200319
